FAERS Safety Report 4452503-1 (Version None)
Quarter: 2004Q3

REPORT INFORMATION
  Report Type: 
  Country: None (occurrence: None)
  Receive Date: 20040916
  Receipt Date: 20040906
  Transmission Date: 20050211
  Serious: Yes (Hospitalization)
  Sender: FDA-Public Use
  Company Number: 2004232333FR

PATIENT
  Age: 84 Year
  Sex: Male

DRUGS (4)
  1. ALDACTONE [Suspect]
     Dosage: 25 MG, QD, ORAL
     Route: 048
     Dates: end: 20040721
  2. TRAMADOL HCL [Concomitant]
  3. RAMIPRIL [Concomitant]
  4. KARDEGIC POWDER [Concomitant]

REACTIONS (2)
  - DEHYDRATION [None]
  - RENAL FAILURE ACUTE [None]
